FAERS Safety Report 9382074 (Version 2)
Quarter: 2013Q3

REPORT INFORMATION
  Report Type: Report from Study
  Country: US (occurrence: US)
  Receive Date: 20130703
  Receipt Date: 20130917
  Transmission Date: 20140515
  Serious: Yes (Other)
  Sender: FDA-Public Use
  Company Number: US-US-EMD SERONO, INC.-7221450

PATIENT
  Age: 57 Year
  Sex: Female

DRUGS (6)
  1. REBIF [Suspect]
     Indication: MULTIPLE SCLEROSIS
     Route: 058
     Dates: start: 20081201
  2. BACLOFEN [Concomitant]
     Indication: MUSCLE SPASTICITY
  3. BACLOFEN [Concomitant]
     Indication: MUSCULOSKELETAL STIFFNESS
  4. VALIUM                             /00017001/ [Concomitant]
     Indication: MUSCLE SPASTICITY
  5. VALIUM                             /00017001/ [Concomitant]
     Indication: MUSCULOSKELETAL STIFFNESS
  6. VITAMIN D                          /00107901/ [Concomitant]
     Indication: PRODUCT USED FOR UNKNOWN INDICATION
     Dates: end: 201306

REACTIONS (4)
  - Type 2 diabetes mellitus [Recovering/Resolving]
  - Blood cholesterol abnormal [Not Recovered/Not Resolved]
  - Vitamin D increased [Not Recovered/Not Resolved]
  - Injection site erythema [Not Recovered/Not Resolved]
